FAERS Safety Report 11046610 (Version 1)
Quarter: 2015Q2

REPORT INFORMATION
  Report Type: Spontaneous
  Country: FR (occurrence: FR)
  Receive Date: 20150420
  Receipt Date: 20150420
  Transmission Date: 20150821
  Serious: Yes (Other)
  Sender: FDA-Public Use
  Company Number: FR-009507513-1504FRA016596

PATIENT
  Age: 62 Year
  Sex: Male

DRUGS (3)
  1. PACLITAXEL. [Concomitant]
     Active Substance: PACLITAXEL
     Indication: CHEMOTHERAPY
     Dosage: 200 MG/M2, INFUSION OF 350 MG FOR 3 HRS ON DAY 1
     Route: 042
     Dates: start: 20140825, end: 20140828
  2. IFOSFAMIDE. [Suspect]
     Active Substance: IFOSFAMIDE
     Indication: CHEMOTHERAPY
     Dosage: 1500 MG/M2 (INFUSION OF 3000MG/M2 FOR 3 HRS FROM DAY 1-3 (1000MG LOT# 3H202L3/ 2000MG LOT#3K209L3)
     Route: 042
     Dates: start: 20140825, end: 20140827
  3. EMEND [Suspect]
     Active Substance: APREPITANT
     Indication: ANTIEMETIC SUPPORTIVE CARE
     Dosage: UNKNOWN
     Route: 048
     Dates: start: 20140825, end: 20140828

REACTIONS (1)
  - Encephalopathy [Recovered/Resolved]

NARRATIVE: CASE EVENT DATE: 201408
